FAERS Safety Report 7910540-6 (Version None)
Quarter: 2011Q4

REPORT INFORMATION
  Report Type: 
  Country: None (occurrence: None)
  Receive Date: 20111111
  Receipt Date: 20111028
  Transmission Date: 20120403
  Serious: Yes (Hospitalization, Other)
  Sender: FDA-Public Use
  Company Number: PHHY2009CA26156

PATIENT
  Sex: Male

DRUGS (1)
  1. SANDOSTATIN LAR [Suspect]
     Indication: METASTATIC CARCINOID TUMOUR
     Dosage: 30 MG EVERY 3 WEEKS
     Route: 030
     Dates: start: 20070425

REACTIONS (12)
  - NON-CARDIAC CHEST PAIN [None]
  - ABDOMINAL PAIN UPPER [None]
  - WEIGHT DECREASED [None]
  - BLOOD PRESSURE SYSTOLIC INCREASED [None]
  - DIVERTICULITIS [None]
  - FLUSHING [None]
  - NAUSEA [None]
  - FATIGUE [None]
  - CHEST PAIN [None]
  - OESOPHAGEAL SPASM [None]
  - ABDOMINAL DISCOMFORT [None]
  - DIARRHOEA [None]
